FAERS Safety Report 6662784-1 (Version None)
Quarter: 2010Q2

REPORT INFORMATION
  Report Type: 
  Country: None (occurrence: None)
  Receive Date: 20100401
  Receipt Date: 20100322
  Transmission Date: 20101027
  Serious: No
  Sender: FDA-Public Use
  Company Number: US-BIOGENIDEC-2010BI009546

PATIENT
  Age: 43 Year
  Sex: Female

DRUGS (4)
  1. AVONEX [Suspect]
     Indication: MULTIPLE SCLEROSIS
     Route: 030
     Dates: start: 20100212, end: 20100212
  2. AVONEX [Suspect]
     Route: 030
     Dates: start: 20100219, end: 20100219
  3. AVONEX [Suspect]
     Route: 030
     Dates: start: 20100226, end: 20100305
  4. AVONEX [Suspect]
     Route: 030
     Dates: start: 20100312

REACTIONS (5)
  - ARTHRALGIA [None]
  - ASTHENIA [None]
  - BACK PAIN [None]
  - HYPOAESTHESIA [None]
  - INFLUENZA LIKE ILLNESS [None]
